FAERS Safety Report 20506601 (Version 1)
Quarter: 2022Q1

REPORT INFORMATION
  Report Type: Spontaneous
  Country: US (occurrence: US)
  Receive Date: 20220223
  Receipt Date: 20220223
  Transmission Date: 20220423
  Serious: No
  Sender: FDA-Public Use
  Company Number: US-TARO-2021TAR00506

PATIENT

DRUGS (1)
  1. FLUOCINONIDE [Suspect]
     Active Substance: FLUOCINONIDE
     Indication: Pruritus
     Dosage: CONTAINER SIZE: 60ML, STORAGE CONDITIONS: ROOM TEMPERATURE
     Route: 061

REACTIONS (1)
  - Drug ineffective [Unknown]
